FAERS Safety Report 4454804-X (Version None)
Quarter: 2004Q3

REPORT INFORMATION
  Report Type: 
  Country: None (occurrence: None)
  Receive Date: 20040824
  Receipt Date: 20040723
  Transmission Date: 20050211
  Serious: Yes (Hospitalization)
  Sender: FDA-Public Use
  Company Number: SU-2004-002543

PATIENT
  Age: 40 Year
  Sex: Male

DRUGS (2)
  1. BENICAR [Suspect]
     Indication: HYPERTENSION
     Dosage: 40 MG QD PO
     Route: 048
     Dates: start: 20040628, end: 20040708
  2. ACTOS ^LILLY^ [Concomitant]

REACTIONS (1)
  - RENAL FAILURE ACUTE [None]
